FAERS Safety Report 4828541-3 (Version None)
Quarter: 2005Q4

REPORT INFORMATION
  Report Type: 
  Country: None (occurrence: None)
  Receive Date: 20051110
  Receipt Date: 20051102
  Transmission Date: 20060501
  Serious: Yes (Other)
  Sender: FDA-Public Use
  Company Number: 2005059638

PATIENT
  Sex: Female

DRUGS (8)
  1. BEXTRA [Suspect]
     Indication: OSTEOARTHRITIS
     Dosage: 40 MG (20 MG, 2 IN 1 D)
  2. TOPROLOL XL (METOPROLOL SUCCINATE) [Concomitant]
  3. LEVBID (HYOSCYAMINE SULFATE) [Concomitant]
  4. TARKA [Concomitant]
  5. SKELAXIN [Concomitant]
  6. NEXIUM [Concomitant]
  7. ESTRADIOL [Concomitant]
  8. ULTRACET [Concomitant]

REACTIONS (3)
  - CHEST PAIN [None]
  - PROCEDURAL PAIN [None]
  - UNEVALUABLE EVENT [None]
